FAERS Safety Report 10055525 (Version 2)
Quarter: 2014Q2

REPORT INFORMATION
  Report Type: Spontaneous
  Country: US (occurrence: US)
  Receive Date: 20140403
  Receipt Date: 20140623
  Transmission Date: 20141212
  Serious: Yes (Other)
  Sender: FDA-Public Use
  Company Number: US-BRISTOL-MYERS SQUIBB COMPANY-20590246

PATIENT
  Sex: Male

DRUGS (1)
  1. ABILIFY [Suspect]
     Dates: start: 20120612

REACTIONS (4)
  - Polyneuropathy [Unknown]
  - Nausea [Unknown]
  - Dizziness [Unknown]
  - Decreased activity [Unknown]
